FAERS Safety Report 13661648 (Version 2)
Quarter: 2017Q3

REPORT INFORMATION
  Report Type: Spontaneous
  Country: US (occurrence: US)
  Receive Date: 20170616
  Receipt Date: 20170806
  Transmission Date: 20171127
  Serious: No
  Sender: FDA-Public Use
  Company Number: US-009507513-1706USA001025

PATIENT
  Age: 36 Year
  Sex: Female
  Weight: 81.63 kg

DRUGS (1)
  1. BELSOMRA [Suspect]
     Active Substance: SUVOREXANT
     Indication: INSOMNIA
     Dosage: 1 TABLET AT BED TIME. BY MOUTH
     Route: 048
     Dates: start: 20170517

REACTIONS (2)
  - Drug dose omission [Unknown]
  - Drug screen positive [Unknown]

NARRATIVE: CASE EVENT DATE: 20170525
